FAERS Safety Report 15841055 (Version 4)
Quarter: 2019Q2

REPORT INFORMATION
  Report Type: Spontaneous
  Country: US (occurrence: US)
  Receive Date: 20190118
  Receipt Date: 20190412
  Transmission Date: 20190711
  Serious: Yes (Other)
  Sender: FDA-Public Use
  Company Number: PHEH2019US002309

PATIENT
  Sex: Male

DRUGS (3)
  1. LENVATINIB [Suspect]
     Active Substance: LENVATINIB
     Indication: RENAL CANCER
     Dosage: 18 MG, QD
     Route: 048
  2. LENVATINIB [Suspect]
     Active Substance: LENVATINIB
     Dosage: 14 MG, QD
     Route: 048
  3. AFINITOR [Suspect]
     Active Substance: EVEROLIMUS
     Indication: RENAL CANCER
     Dosage: 5 MG, QD
     Route: 048

REACTIONS (9)
  - Blood thyroid stimulating hormone increased [Unknown]
  - Chest pain [Unknown]
  - Blood pressure increased [Unknown]
  - Weight decreased [Unknown]
  - Cough [Unknown]
  - Urticaria [Unknown]
  - Rash [Unknown]
  - Chest discomfort [Unknown]
  - Oral mucosal blistering [Unknown]
